FAERS Safety Report 24290259 (Version 1)
Quarter: 2024Q3

REPORT INFORMATION
  Report Type: Spontaneous
  Country: CA (occurrence: CA)
  Receive Date: 20240906
  Receipt Date: 20240906
  Transmission Date: 20241017
  Serious: Yes (Other)
  Sender: BAYER
  Company Number: CA-BAYER-2024A126598

PATIENT
  Age: 56 Year
  Sex: Female
  Weight: 58.957 kg

DRUGS (1)
  1. CLARITIN [Suspect]
     Active Substance: LORATADINE
     Indication: Rhinitis allergic
     Dosage: 1 DF, QD
     Route: 048

REACTIONS (2)
  - Sinus tachycardia [Recovered/Resolved]
  - Extrasystoles [None]
